FAERS Safety Report 6616265-1 (Version None)
Quarter: 2010Q1

REPORT INFORMATION
  Report Type: 
  Country: None (occurrence: None)
  Receive Date: 20100305
  Receipt Date: 20100222
  Transmission Date: 20100710
  Serious: Yes (Disabling, Other)
  Sender: FDA-Public Use
  Company Number: US-ELI_LILLY_AND_COMPANY-US201002006386

PATIENT
  Age: 74 Year
  Sex: Female

DRUGS (2)
  1. GEMZAR [Suspect]
     Indication: PANCREATIC CARCINOMA METASTATIC
     Dosage: 875 MG, UNK
  2. VALIUM [Concomitant]
     Dosage: UNK, AS NEEDED

REACTIONS (4)
  - DEEP VEIN THROMBOSIS [None]
  - DYSGEUSIA [None]
  - HYPOPHAGIA [None]
  - OEDEMA PERIPHERAL [None]
